FAERS Safety Report 7052196-3 (Version None)
Quarter: 2010Q4

REPORT INFORMATION
  Report Type: 
  Country: None (occurrence: None)
  Receive Date: 20101013
  Receipt Date: 20100929
  Transmission Date: 20110411
  Serious: Yes (Hospitalization)
  Sender: FDA-Public Use
  Company Number: 1000015278

PATIENT
  Age: 30 Year
  Sex: Female

DRUGS (7)
  1. CITALOPRAM ORAL SOLUTION (CITALOPRAM HYDROBROMAIDE) (DROPS (FOR ORAL U [Suspect]
     Indication: POSTPARTUM DEPRESSION
     Dosage: 5 GTT (5 GTT, 1 IN 1 D), ORAL
     Route: 048
     Dates: start: 20100629, end: 20100705
  2. HALDOL [Suspect]
     Indication: ACUTE PSYCHOSIS
     Dosage: 3 MG (3 MG, 1 IN 1 D), ORAL
     Route: 048
     Dates: start: 20100629, end: 20100706
  3. SEROQUEL [Suspect]
     Indication: ACUTE PSYCHOSIS
     Dosage: 50 MG (50 MG, 1 IN 1 D), ORAL
     Route: 048
  4. EUTIROX (LEVOTHYROXINE) (75 MICROGRAM, TABLETS) (LEVOTHYROXINE) [Concomitant]
  5. AKINETON (BIPERIDEN) (4 MILLIGRAM, TABLETS) (BIPERIDEN) [Concomitant]
  6. BROMAN (BROMOCRIPTINE) (2.5 MILLIGRAM, DROPS (FOR ORAL USE)) (BROMOCRI [Concomitant]
  7. DOSTINEX (CABERGOLINE) (0.5 MILLIGRAM, TABLETS) (CABERGOLINE) [Concomitant]

REACTIONS (1)
  - HEPATITIS ACUTE [None]
